FAERS Safety Report 9416862 (Version 2)
Quarter: 2014Q1

REPORT INFORMATION
  Report Type: Spontaneous
  Country: US (occurrence: US)
  Receive Date: 20130724
  Receipt Date: 20140109
  Transmission Date: 20141002
  Serious: Yes (Hospitalization)
  Sender: FDA-Public Use
  Company Number: US-B.I. PHARMACEUTICALS,INC./RIDGEFIELD-2013-BI-21804BP

PATIENT
  Age: 83 Year
  Sex: Male
  Weight: 77.11 kg

DRUGS (9)
  1. PRADAXA [Suspect]
     Indication: ANTICOAGULANT THERAPY
     Dosage: 150 MG
     Dates: start: 20120420
  2. LASIX [Concomitant]
     Dosage: 40 MG
  3. PRAVACHOL [Concomitant]
     Dosage: 40 MG
  4. COREG [Concomitant]
     Dosage: 6.25 MG
  5. PROTONIX [Concomitant]
     Dosage: 40 MG
  6. KCL [Concomitant]
     Dosage: 20 MEQ
  7. FEOSOL [Concomitant]
  8. ULTRAM [Concomitant]
     Dosage: 200 MG
  9. ARICEPT [Concomitant]
     Dosage: 10 MG

REACTIONS (1)
  - Haematuria [Unknown]
